FAERS Safety Report 6415605-6 (Version None)
Quarter: 2009Q4

REPORT INFORMATION
  Report Type: 
  Country: None (occurrence: None)
  Receive Date: 20091027
  Receipt Date: 20090504
  Transmission Date: 20100525
  Serious: No
  Sender: FDA-Public Use
  Company Number: US-ASTRAZENECA-2009UW11304

PATIENT
  Age: 80 Year
  Sex: Female
  Weight: 93 kg

DRUGS (4)
  1. TENORETIC 100 [Suspect]
     Route: 048
  2. POTASSIUM CHLORIDE [Concomitant]
  3. FISH OIL [Concomitant]
  4. VITAMINS [Concomitant]

REACTIONS (2)
  - DRUG INEFFECTIVE [None]
  - POLLAKIURIA [None]
